FAERS Safety Report 4766783-6 (Version None)
Quarter: 2005Q3

REPORT INFORMATION
  Report Type: 
  Country: None (occurrence: None)
  Receive Date: 20050908
  Receipt Date: 20050824
  Transmission Date: 20060218
  Serious: Yes (Hospitalization)
  Sender: FDA-Public Use
  Company Number: 195773

PATIENT
  Age: 57 Year
  Sex: Female
  Weight: 78.0187 kg

DRUGS (5)
  1. AVONEX [Suspect]
     Indication: MULTIPLE SCLEROSIS
     Dosage: 30 UG;QW; IM
     Route: 030
     Dates: start: 19980601, end: 20031101
  2. AVONEX [Suspect]
     Indication: MULTIPLE SCLEROSIS
     Dosage: 30 UG;QW; IM
     Route: 030
     Dates: start: 20031101, end: 20040301
  3. AVONEX [Suspect]
     Indication: MULTIPLE SCLEROSIS
     Dosage: 30 UG;QW; IM
     Route: 030
     Dates: start: 20040301
  4. ANTIHYPERTENSIVE MEDICATION (NOS) [Concomitant]
  5. MIRAPEX [Concomitant]

REACTIONS (13)
  - CARDIAC STRESS TEST ABNORMAL [None]
  - CHEST PAIN [None]
  - COLD SWEAT [None]
  - CRYING [None]
  - DIZZINESS [None]
  - FALL [None]
  - FLATULENCE [None]
  - GASTROOESOPHAGEAL REFLUX DISEASE [None]
  - INFLUENZA LIKE ILLNESS [None]
  - NECK PAIN [None]
  - ROAD TRAFFIC ACCIDENT [None]
  - STRESS [None]
  - VISUAL DISTURBANCE [None]
